FAERS Safety Report 14013476 (Version 1)
Quarter: 2017Q3

REPORT INFORMATION
  Report Type: Spontaneous
  Country: US (occurrence: US)
  Receive Date: 20170926
  Receipt Date: 20170926
  Transmission Date: 20171128
  Serious: No
  Sender: FDA-Public Use
  Company Number: US-DRREDDYS-USA/USA/17/0087793

PATIENT
  Age: 73 Year
  Sex: Female
  Weight: 45.3 kg

DRUGS (1)
  1. METOPROLOL SUCCINATE. [Suspect]
     Active Substance: METOPROLOL SUCCINATE
     Indication: TACHYCARDIA
     Route: 048
     Dates: start: 20170218, end: 20170307

REACTIONS (5)
  - Wrong technique in product usage process [Unknown]
  - Hypotension [Not Recovered/Not Resolved]
  - Dysgeusia [Not Recovered/Not Resolved]
  - Product solubility abnormal [Unknown]
  - Drug ineffective [Unknown]
